FAERS Safety Report 7943146-3 (Version None)
Quarter: 2011Q4

REPORT INFORMATION
  Report Type: 
  Country: None (occurrence: None)
  Receive Date: 20111128
  Receipt Date: 20111118
  Transmission Date: 20120403
  Serious: Yes (Hospitalization, Other)
  Sender: FDA-Public Use
  Company Number: PHEH2011US009878

PATIENT
  Sex: Female

DRUGS (6)
  1. HYDROXYUREA [Concomitant]
     Dosage: 1500 MG, QD
     Route: 048
  2. EXJADE [Suspect]
     Dosage: 1500 MG, QD
     Route: 048
  3. LAVOMAX [Concomitant]
     Dosage: 80 MG, PER 12 HRS
     Route: 058
  4. FOLIC ACID [Concomitant]
     Dosage: 1 MG, QD
     Route: 048
  5. PENICILLIN VK [Concomitant]
     Dosage: 250 MG, BID
     Route: 048
  6. HYDROXYUREA [Concomitant]
     Dosage: 1000 MG, UNK
     Route: 048

REACTIONS (2)
  - ROAD TRAFFIC ACCIDENT [None]
  - ACUTE CHEST SYNDROME [None]
